FAERS Safety Report 6896185-8 (Version None)
Quarter: 2010Q3

REPORT INFORMATION
  Report Type: 
  Country: None (occurrence: None)
  Receive Date: 20100802
  Receipt Date: 20100722
  Transmission Date: 20110219
  Serious: Yes (Hospitalization)
  Sender: FDA-Public Use
  Company Number: A0867517A

PATIENT
  Sex: Male
  Weight: 142.3 kg

DRUGS (8)
  1. AVANDIA [Suspect]
  2. AVANDAMET [Suspect]
  3. GLUCOTROL [Concomitant]
  4. CREON [Concomitant]
  5. THYROID TAB [Concomitant]
  6. GLUCOPHAGE [Concomitant]
  7. ALBUTEROL [Concomitant]
  8. PROTONIX [Concomitant]

REACTIONS (4)
  - ADVERSE EVENT [None]
  - CARDIOMEGALY [None]
  - HEADACHE [None]
  - MOUTH HAEMORRHAGE [None]
